FAERS Safety Report 10204674 (Version 1)
Quarter: 2014Q2

REPORT INFORMATION
  Report Type: Spontaneous
  Country: US (occurrence: US)
  Receive Date: 20140529
  Receipt Date: 20140529
  Transmission Date: 20141212
  Serious: Yes (Death, Hospitalization)
  Sender: FDA-Public Use
  Company Number: US-GLAXOSMITHKLINE-A1074346A

PATIENT
  Age: 77 Year
  Sex: Male

DRUGS (5)
  1. ADVAIR HFA [Suspect]
     Indication: CHRONIC OBSTRUCTIVE PULMONARY DISEASE
     Route: 055
  2. VENTOLIN [Suspect]
     Indication: CHRONIC OBSTRUCTIVE PULMONARY DISEASE
     Route: 055
  3. PREDNISONE [Concomitant]
  4. NEBULIZER [Concomitant]
  5. UNSPECIFIED MEDICATIONS [Concomitant]

REACTIONS (8)
  - Death [Fatal]
  - Pneumonia [Unknown]
  - Renal failure acute [Unknown]
  - Dialysis [Unknown]
  - Volvulus [Unknown]
  - Cardiac disorder [Unknown]
  - Cardiac monitoring [Unknown]
  - Malaise [Unknown]
